FAERS Safety Report 5047801-7 (Version None)
Quarter: 2006Q3

REPORT INFORMATION
  Report Type: 
  Country: None (occurrence: None)
  Receive Date: 20060710
  Receipt Date: 20060710
  Transmission Date: 20061208
  Serious: Yes (Hospitalization)
  Sender: FDA-Public Use
  Company Number: None

PATIENT
  Age: 47 Year
  Sex: Female
  Weight: 99.4 kg

DRUGS (2)
  1. DAPTOMYCIN 600 MG [Suspect]
     Indication: DEVICE RELATED INFECTION
     Dosage: 600 MG DAILY IV
     Route: 042
     Dates: start: 20060525, end: 20060531
  2. ERTAPENEM [Concomitant]

REACTIONS (1)
  - RHABDOMYOLYSIS [None]
